FAERS Safety Report 21989149 (Version 2)
Quarter: 2023Q1

REPORT INFORMATION
  Report Type: Spontaneous
  Country: KZ (occurrence: KZ)
  Receive Date: 20230214
  Receipt Date: 20230228
  Transmission Date: 20230418
  Serious: Yes (Other)
  Sender: FDA-Public Use
  Company Number: KZ-002147023-NVSC2023KZ008923

PATIENT
  Age: 55 Year
  Sex: Female

DRUGS (2)
  1. BROLUCIZUMAB [Suspect]
     Active Substance: BROLUCIZUMAB
     Indication: Age-related macular degeneration
     Dosage: 6 MG (0.05 ML (1 INJECTION)
     Route: 031
     Dates: start: 20221206, end: 20221206
  2. EYLEA [Suspect]
     Active Substance: AFLIBERCEPT
     Indication: Product used for unknown indication
     Dosage: UNK (SECOND INJECTION)
     Route: 065

REACTIONS (5)
  - Eye opacity [Recovering/Resolving]
  - Vision blurred [Unknown]
  - Eye pain [Recovering/Resolving]
  - Ocular hyperaemia [Recovering/Resolving]
  - Dry age-related macular degeneration [Unknown]

NARRATIVE: CASE EVENT DATE: 20221208
